FAERS Safety Report 23581090 (Version 1)
Quarter: 2024Q1

REPORT INFORMATION
  Report Type: Spontaneous
  Country: FR (occurrence: FR)
  Receive Date: 20240229
  Receipt Date: 20240229
  Transmission Date: 20240409
  Serious: Yes (Other)
  Sender: FDA-Public Use
  Company Number: None

PATIENT
  Age: 62 Year
  Sex: Female

DRUGS (5)
  1. BRINZOLAMIDE [Suspect]
     Active Substance: BRINZOLAMIDE
     Indication: Glaucoma
     Dosage: 2.000DROP (1/12 MILLILITRE) QD,COLLYRE EN SUSPENSION
     Route: 047
     Dates: start: 20231122, end: 20231202
  2. CARTEOLOL [Suspect]
     Active Substance: CARTEOLOL
     Indication: Glaucoma
     Dosage: 1.000DROP (1/12 MILLILITRE) QD,OLLYRE EN SOLUTION EN R?CIPIENT UNIDOSE
     Route: 047
     Dates: start: 20220110, end: 20231120
  3. COMBIGAN [Suspect]
     Active Substance: BRIMONIDINE TARTRATE\TIMOLOL MALEATE
     Indication: Glaucoma
     Dosage: 2.000DROP (1/12 MILLILITRE) QD,COLLYRE EN SOLUTION
     Route: 047
     Dates: start: 20231206, end: 20240103
  4. LATANOPROST [Suspect]
     Active Substance: LATANOPROST
     Indication: Glaucoma
     Dosage: 1.000DROP (1/12 MILLILITRE) QD, COLLYRE EN SOLUTION
     Route: 047
     Dates: start: 20231122, end: 20231122
  5. LATANOPROST [Suspect]
     Active Substance: LATANOPROST
     Indication: Glaucoma
     Dosage: 1.000DROP (1/12 MILLILITRE) QD,COLLYRE EN SOLUTION EN R?CIPIENT UNIDOSE
     Route: 047
     Dates: start: 20230323, end: 20231120

REACTIONS (1)
  - Constipation [Not Recovered/Not Resolved]

NARRATIVE: CASE EVENT DATE: 20220101
